FAERS Safety Report 9016052 (Version 1)
Quarter: 2013Q1

REPORT INFORMATION
  Report Type: Spontaneous
  Country: US (occurrence: US)
  Receive Date: 20130116
  Receipt Date: 20130116
  Transmission Date: 20140127
  Serious: Yes (Other)
  Sender: FDA-Public Use
  Company Number: US-009507513-0911USA00849

PATIENT
  Age: 7 Year
  Sex: Female
  Weight: 23.59 kg

DRUGS (3)
  1. SINGULAIR [Suspect]
     Indication: ASTHMA
     Dosage: 1 DF, QD
     Route: 048
     Dates: start: 20070315, end: 20070620
  2. SINGULAIR [Suspect]
     Indication: HYPERSENSITIVITY
     Dosage: 1 DF, QD
     Route: 048
  3. SINGULAIR [Suspect]
     Dosage: UNK

REACTIONS (10)
  - Aggression [Unknown]
  - Anger [Unknown]
  - Asthma [Unknown]
  - Depressed mood [Unknown]
  - Emotional disorder [Unknown]
  - Fear [Unknown]
  - Irritability [Unknown]
  - Mood swings [Unknown]
  - Nightmare [Unknown]
  - Psychotic disorder [Unknown]
